FAERS Safety Report 23843913 (Version 5)
Quarter: 2024Q4

REPORT INFORMATION
  Report Type: Spontaneous
  Country: US (occurrence: US)
  Receive Date: 20240510
  Receipt Date: 20241204
  Transmission Date: 20250114
  Serious: No
  Sender: SANOFI AVENTIS
  Company Number: US-SA-SAC20240430001699

PATIENT
  Age: 43 Year
  Sex: Female

DRUGS (4)
  1. DUPIXENT [Suspect]
     Active Substance: DUPILUMAB
     Indication: Dermatitis atopic
     Dosage: 600 MG, 1X
     Route: 058
     Dates: start: 20240319, end: 20240319
  2. DUPIXENT [Suspect]
     Active Substance: DUPILUMAB
     Indication: Dermatitis contact
     Dosage: 300 MG, QOW
     Route: 058
     Dates: start: 20240402
  3. ELIDEL [Concomitant]
     Active Substance: PIMECROLIMUS
     Indication: Dermatitis atopic
     Dosage: UNK
     Route: 061
     Dates: start: 20240112
  4. VITAMIN B [Concomitant]
     Active Substance: VITAMIN B
     Dosage: UNK

REACTIONS (7)
  - Blister [Unknown]
  - Condition aggravated [Unknown]
  - Hand dermatitis [Recovered/Resolved]
  - Injection site bruising [Recovered/Resolved]
  - Accidental exposure to product [Unknown]
  - Exposure via skin contact [Unknown]
  - Product use in unapproved indication [Unknown]

NARRATIVE: CASE EVENT DATE: 20240101
